FAERS Safety Report 14831009 (Version 1)
Quarter: 2018Q2

REPORT INFORMATION
  Report Type: Spontaneous
  Country: US (occurrence: US)
  Receive Date: 20180430
  Receipt Date: 20180430
  Transmission Date: 20180711
  Serious: Yes (Other)
  Sender: FDA-Public Use
  Company Number: US-SHIRE-US201815835

PATIENT
  Age: 29 Year
  Sex: Male

DRUGS (4)
  1. BUDESONIDE. [Concomitant]
     Active Substance: BUDESONIDE
     Indication: AUTOIMMUNE HEPATITIS
  2. SIROLIMUS. [Concomitant]
     Active Substance: SIROLIMUS
     Indication: AUTOIMMUNE HEPATITIS
  3. 6-MP [Concomitant]
     Active Substance: MERCAPTOPURINE
     Indication: AUTOIMMUNE HEPATITIS
  4. 476 (MESALAZINE/MESALAMINE) [Suspect]
     Active Substance: MESALAMINE
     Indication: COLITIS ULCERATIVE
     Route: 065

REACTIONS (1)
  - Pancytopenia [Unknown]
